FAERS Safety Report 9533326 (Version 1)
Quarter: 2013Q3

REPORT INFORMATION
  Report Type: Spontaneous
  Country: US (occurrence: US)
  Receive Date: 20130918
  Receipt Date: 20130918
  Transmission Date: 20140515
  Serious: No
  Sender: FDA-Public Use
  Company Number: US-PURDUE-USA-2011-0076820

PATIENT
  Sex: Male

DRUGS (4)
  1. BUTRANS [Suspect]
     Indication: BACK PAIN
     Dosage: 20 MCG, Q1H
     Route: 062
  2. TRAMADOL [Concomitant]
     Indication: PAIN
     Dosage: UNK
  3. LYRICA [Concomitant]
     Indication: PAIN
     Dosage: UNK
  4. ROBAXIN [Concomitant]
     Indication: PAIN
     Dosage: UNK

REACTIONS (1)
  - Feeling abnormal [Unknown]
